FAERS Safety Report 23696325 (Version 2)
Quarter: 2024Q2

REPORT INFORMATION
  Report Type: Spontaneous
  Country: US (occurrence: US)
  Receive Date: 20240402
  Receipt Date: 20240410
  Transmission Date: 20240715
  Serious: No
  Sender: FDA-Public Use
  Company Number: US-BRISTOL-MYERS SQUIBB COMPANY-2024-052029

PATIENT
  Age: 46 Year
  Sex: Male

DRUGS (2)
  1. REVLIMID [Suspect]
     Active Substance: LENALIDOMIDE
     Indication: Product used for unknown indication
     Route: 048
     Dates: start: 202401
  2. REVLIMID [Suspect]
     Active Substance: LENALIDOMIDE

REACTIONS (5)
  - Pyrexia [Unknown]
  - Abdominal pain upper [Unknown]
  - Headache [Unknown]
  - Night sweats [Unknown]
  - Cough [Unknown]
